FAERS Safety Report 15773389 (Version 2)
Quarter: 2019Q1

REPORT INFORMATION
  Report Type: Not Available
  Country: US (occurrence: US)
  Receive Date: 20181228
  Receipt Date: 20190129
  Transmission Date: 20190417
  Serious: No
  Sender: FDA-Public Use
  Company Number: US-NEUROCRINE BIOSCIENCES INC.-2018NBI03603

PATIENT
  Sex: Male

DRUGS (5)
  1. INGREZZA [Suspect]
     Active Substance: VALBENAZINE
     Route: 048
     Dates: start: 20170801
  2. IVERMECTIN. [Suspect]
     Active Substance: IVERMECTIN
     Indication: PRODUCT USED FOR UNKNOWN INDICATION
     Route: 048
  3. PERMETHRIN. [Suspect]
     Active Substance: PERMETHRIN
     Indication: PRODUCT USED FOR UNKNOWN INDICATION
     Route: 048
  4. INGREZZA [Suspect]
     Active Substance: VALBENAZINE
     Indication: TARDIVE DYSKINESIA
     Route: 048
     Dates: start: 20170705, end: 2017
  5. HYDROCORTISONE. [Suspect]
     Active Substance: HYDROCORTISONE
     Indication: PRODUCT USED FOR UNKNOWN INDICATION
     Route: 048

REACTIONS (2)
  - Tic [Unknown]
  - Acarodermatitis [Unknown]
